FAERS Safety Report 5239523-4 (Version None)
Quarter: 2007Q1

REPORT INFORMATION
  Report Type: 
  Country: None (occurrence: None)
  Receive Date: 20070216
  Receipt Date: 20070207
  Transmission Date: 20070707
  Serious: Yes (Other)
  Sender: FDA-Public Use
  Company Number: 2007AC00249

PATIENT
  Age: 23 Year
  Sex: Female
  Weight: 55 kg

DRUGS (1)
  1. EMLA [Suspect]
     Route: 061
     Dates: start: 20060101, end: 20060101

REACTIONS (2)
  - CYANOSIS [None]
  - SOMNOLENCE [None]
